FAERS Safety Report 26108967 (Version 1)
Quarter: 2025Q4

REPORT INFORMATION
  Report Type: Spontaneous
  Country: US (occurrence: None)
  Receive Date: 20251128
  Receipt Date: 20251128
  Transmission Date: 20260118
  Serious: Yes (Life-Threatening, Hospitalization, Disabling, Other)
  Sender: FDA-CTU
  Company Number: None

PATIENT
  Age: 29 Year
  Sex: Female
  Weight: 49.5 kg

DRUGS (8)
  1. LURASIDONE HCL [Suspect]
     Active Substance: LURASIDONE HYDROCHLORIDE
     Indication: Schizotypal personality disorder
     Dates: start: 20230901, end: 20250101
  2. VYVANSE [Suspect]
     Active Substance: LISDEXAMFETAMINE DIMESYLATE
  3. DEXEDRINE [Suspect]
     Active Substance: DEXTROAMPHETAMINE SULFATE
  4. NICOTINE [Suspect]
     Active Substance: NICOTINE
  5. Lurasidone 40-60mg [Concomitant]
  6. YASMIN [Concomitant]
     Active Substance: DROSPIRENONE\ETHINYL ESTRADIOL
  7. DEXEDRINE [Concomitant]
     Active Substance: DEXTROAMPHETAMINE SULFATE
  8. VITAMINS [Concomitant]
     Active Substance: VITAMINS

REACTIONS (9)
  - Nicotine dependence [None]
  - Euphoric mood [None]
  - Product prescribing error [None]
  - Blindness transient [None]
  - Chest pain [None]
  - Drug dependence [None]
  - Dependence [None]
  - Suicide attempt [None]
  - Substance use disorder [None]
